FAERS Safety Report 9455453 (Version 1)
Quarter: 2013Q3

REPORT INFORMATION
  Report Type: Report from Study
  Country: CA (occurrence: CA)
  Receive Date: 20130813
  Receipt Date: 20130813
  Transmission Date: 20140515
  Serious: Yes (Other)
  Sender: FDA-Public Use
  Company Number: CA-JNJFOC-20130801584

PATIENT
  Age: 33 Year
  Sex: Female
  Weight: 72.2 kg

DRUGS (4)
  1. REMICADE [Suspect]
     Indication: COLITIS ULCERATIVE
     Dosage: 34TH INFUSION
     Route: 042
     Dates: start: 20130522
  2. REMICADE [Suspect]
     Indication: COLITIS ULCERATIVE
     Route: 042
     Dates: start: 20071127
  3. TYLENOL 1 [Concomitant]
     Route: 065
  4. ADVIL [Concomitant]
     Route: 065

REACTIONS (2)
  - Back injury [Recovering/Resolving]
  - Intervertebral disc disorder [Recovering/Resolving]
